FAERS Safety Report 13699154 (Version 2)
Quarter: 2017Q3

REPORT INFORMATION
  Report Type: Report from Study
  Country: None (occurrence: RO)
  Receive Date: 20170628
  Receipt Date: 20170718
  Transmission Date: 20171127
  Serious: Yes (Hospitalization)
  Sender: FDA-Public Use
  Company Number: RO-ABBVIE-17P-135-2020045-00

PATIENT
  Age: 63 Year
  Sex: Male

DRUGS (1)
  1. DUODOPA [Suspect]
     Active Substance: CARBIDOPA\LEVODOPA
     Indication: PARKINSON^S DISEASE
     Dosage: DM=5; RC=3,3; ED=1
     Route: 050
     Dates: start: 20131211

REACTIONS (2)
  - Gastric ulcer [Recovered/Resolved]
  - Melaena [Recovering/Resolving]

NARRATIVE: CASE EVENT DATE: 20170621
